FAERS Safety Report 21239945 (Version 1)
Quarter: 2022Q3

REPORT INFORMATION
  Report Type: Spontaneous
  Country: US (occurrence: None)
  Receive Date: 20220820
  Receipt Date: 20220820
  Transmission Date: 20221026
  Serious: Yes (Other)
  Sender: FDA-Public Use
  Company Number: None

PATIENT
  Age: 66 Year
  Sex: Female
  Weight: 63.9 kg

DRUGS (4)
  1. ALENDRONATE [Suspect]
     Active Substance: ALENDRONATE SODIUM
     Dosage: OTHER QUANTITY : 1 TABLET(S);?OTHER FREQUENCY : ONCE A WEEK;?
     Route: 048
     Dates: start: 20210901, end: 20220820
  2. FLUTICASONE PROPIONATE [Concomitant]
     Active Substance: FLUTICASONE PROPIONATE
  3. SALMETEROL XINAFOATE [Concomitant]
     Active Substance: SALMETEROL XINAFOATE
  4. VITAMINS [Concomitant]
     Active Substance: VITAMINS

REACTIONS (7)
  - Oral herpes [None]
  - Stress [None]
  - Rash [None]
  - Blister [None]
  - Urticaria [None]
  - Eyelids pruritus [None]
  - Eye pain [None]

NARRATIVE: CASE EVENT DATE: 20220510
